FAERS Safety Report 4412682-9 (Version None)
Quarter: 2004Q2

REPORT INFORMATION
  Report Type: 
  Country: None (occurrence: None)
  Receive Date: 20040630
  Receipt Date: 20040316
  Transmission Date: 20050107
  Serious: No
  Sender: FDA-Public Use
  Company Number: 04P-163-0253810

PATIENT
  Age: 81 Year
  Sex: Female

DRUGS (8)
  1. HUMIRA [Suspect]
     Indication: RHEUMATOID ARTHRITIS
     Dosage: 40 MG, 1 IN 1 WK, SUBCUTANEOUS
     Route: 058
     Dates: start: 20040101, end: 20040101
  2. ALENDRONATE SODIUM [Concomitant]
  3. HYDROCODONE [Concomitant]
  4. PREDNISONE [Concomitant]
  5. PROPRANOLOL [Concomitant]
  6. FISH OIL [Concomitant]
  7. ASPIRIN [Concomitant]
  8. CALCIUM CARBONATE [Concomitant]

REACTIONS (2)
  - INJECTION SITE BURNING [None]
  - RASH [None]
